FAERS Safety Report 16404984 (Version 1)
Quarter: 2019Q2

REPORT INFORMATION
  Report Type: Report from Study
  Country: JP (occurrence: JP)
  Receive Date: 20190607
  Receipt Date: 20190607
  Transmission Date: 20190711
  Serious: Yes (Life-Threatening, Hospitalization, Disabling, Other)
  Sender: FDA-Public Use
  Company Number: JP-ACTELION-A-CH2019-191318

PATIENT
  Age: 68 Year
  Sex: Male
  Weight: 47.9 kg

DRUGS (19)
  1. LASIX [Concomitant]
     Active Substance: FUROSEMIDE
     Indication: CARDIAC FAILURE
     Dosage: 20 MG, QD
     Dates: start: 20181015, end: 20181031
  2. CARBOCISTEINE [Concomitant]
     Active Substance: CARBOCYSTEINE
     Indication: ASTHMA
     Dosage: 750 MG, QD
     Dates: start: 20180910, end: 20180923
  3. UPTRAVI [Suspect]
     Active Substance: SELEXIPAG
     Indication: PULMONARY ARTERIAL HYPERTENSION
     Dosage: 0.2 MG, BID
     Route: 048
     Dates: start: 20180910, end: 20181031
  4. ADEMPAS [Concomitant]
     Active Substance: RIOCIGUAT
     Indication: PULMONARY ARTERIAL HYPERTENSION
     Dosage: 7.5 MG, QD
     Dates: end: 20181031
  5. TAKECAB [Concomitant]
     Active Substance: VONOPRAZAN FUMURATE
     Indication: GASTROOESOPHAGEAL REFLUX DISEASE
     Dosage: 10 MG, QD
     Dates: end: 20181031
  6. ASTOMIN [Concomitant]
     Active Substance: DIMEMORFAN
     Indication: ASTHMA
     Dosage: 30 MG, QD
     Dates: start: 20180910, end: 20180923
  7. VITAMINS NOS [Concomitant]
     Active Substance: VITAMINS
     Dosage: UNK
     Dates: end: 20181031
  8. EPOPROSTENOL. [Concomitant]
     Active Substance: EPOPROSTENOL
     Dosage: UNK
     Dates: end: 20181226
  9. OPSUMIT [Concomitant]
     Active Substance: MACITENTAN
     Indication: PULMONARY ARTERIAL HYPERTENSION
     Dosage: 10 MG, QD
     Dates: end: 20181031
  10. ETIZOLAM [Concomitant]
     Active Substance: ETIZOLAM
     Indication: INSOMNIA
     Dosage: 1 MG, QD
     Dates: end: 20181031
  11. KIPRES [Concomitant]
     Active Substance: MONTELUKAST SODIUM
     Indication: ASTHMA
     Dosage: 10 MG, QD
     Dates: end: 20181031
  12. ZOLPIDEM TARTRATE. [Concomitant]
     Active Substance: ZOLPIDEM TARTRATE
     Indication: INSOMNIA
     Dosage: 10 MG, QD
     Dates: end: 20181031
  13. RENIVACE [Suspect]
     Active Substance: ENALAPRIL
     Indication: HYPERTENSION
     Dosage: 2.5 MG, QD
     Route: 065
     Dates: end: 20181031
  14. JUVELA [Concomitant]
     Active Substance: .ALPHA.-TOCOPHEROL\RETINOL
     Dosage: 300 MG, QD
     Dates: end: 20181031
  15. SYMBICORT [Concomitant]
     Active Substance: BUDESONIDE\FORMOTEROL FUMARATE DIHYDRATE
     Indication: ASTHMA
     Dosage: 4 DF, QD
     Dates: end: 20181031
  16. SPIRIVA [Concomitant]
     Active Substance: TIOTROPIUM BROMIDE MONOHYDRATE
     Indication: ASTHMA
     Dosage: 2 DF, QD
     Dates: end: 20181031
  17. MEPTIN AIR [Concomitant]
     Active Substance: PROCATEROL HYDROCHLORIDE
     Indication: ASTHMA
     Dosage: UNK
     Dates: end: 20181031
  18. CODEINE PHOSPHATE [Concomitant]
     Active Substance: CODEINE PHOSPHATE
     Indication: ASTHMA
     Dosage: 6 G, QD
     Dates: end: 20181031
  19. PROSTANDIN [Concomitant]
     Dosage: UNK
     Dates: end: 20181031

REACTIONS (19)
  - Hypotension [Not Recovered/Not Resolved]
  - Diarrhoea [Unknown]
  - Bronchial obstruction [Unknown]
  - Pleurodesis [Unknown]
  - Bronchial artery embolisation [Unknown]
  - Constipation [Unknown]
  - Loss of consciousness [Recovered/Resolved with Sequelae]
  - Pneumothorax [Unknown]
  - Thoracic cavity drainage [Recovered/Resolved]
  - Therapeutic embolisation [Unknown]
  - Muscular weakness [Unknown]
  - Dyspnoea [Recovering/Resolving]
  - Transfusion [Unknown]
  - Decubitus ulcer [Unknown]
  - Haemothorax [Unknown]
  - Tracheostomy [Unknown]
  - Cardio-respiratory arrest [Recovered/Resolved with Sequelae]
  - Thoracic haemorrhage [Unknown]
  - Productive cough [Unknown]

NARRATIVE: CASE EVENT DATE: 20181015
